FAERS Safety Report 14625171 (Version 1)
Quarter: 2018Q1

REPORT INFORMATION
  Report Type: Report from Study
  Country: PL (occurrence: PL)
  Receive Date: 20180312
  Receipt Date: 20180312
  Transmission Date: 20180509
  Serious: Yes (Other)
  Sender: FDA-Public Use
  Company Number: PL-ASTELLAS-2018US011953

PATIENT
  Weight: 1 kg

DRUGS (2)
  1. TACROLIMUS. [Suspect]
     Active Substance: TACROLIMUS
     Indication: FOETAL EXPOSURE DURING PREGNANCY
     Dosage: UNK, UNKNOWN FREQ.
     Route: 064
  2. TACROLIMUS. [Suspect]
     Active Substance: TACROLIMUS
     Indication: MATERNAL EXPOSURE DURING BREAST FEEDING
     Dosage: UNK, UNKNOWN FREQ.
     Route: 063

REACTIONS (2)
  - Premature baby [Unknown]
  - Exposure via breast milk [Unknown]
